FAERS Safety Report 10969425 (Version 3)
Quarter: 2015Q2

REPORT INFORMATION
  Report Type: Spontaneous
  Country: HR (occurrence: HR)
  Receive Date: 20150331
  Receipt Date: 20150501
  Transmission Date: 20150821
  Serious: Yes (Life-Threatening, Hospitalization, Other)
  Sender: FDA-Public Use
  Company Number: HR-ROCHE-1556680

PATIENT
  Age: 56 Year
  Sex: Female

DRUGS (11)
  1. NEORAL [Suspect]
     Active Substance: CYCLOSPORINE
     Indication: IMMUNOSUPPRESSION
     Dosage: DAILY DOSE
     Route: 048
     Dates: start: 20121223
  2. FURSEMID [Concomitant]
     Active Substance: FUROSEMIDE
     Indication: CARDIAC FAILURE CONGESTIVE
     Dosage: DAILY DOSE
     Route: 048
  3. BISOPROLOL [Concomitant]
     Active Substance: BISOPROLOL
     Indication: HYPERTENSION
     Dosage: DAILY DOSE
     Route: 048
  4. TRICOR [Concomitant]
     Active Substance: FENOFIBRATE
     Dosage: DAILY DOSE
     Route: 048
  5. MARFARIN [Concomitant]
     Active Substance: WARFARIN
     Dosage: DAILY DOSE
     Route: 048
  6. CIPROFLOXACINE [Concomitant]
     Active Substance: CIPROFLOXACIN
     Indication: URINARY TRACT INFECTION
     Route: 065
     Dates: start: 20130410, end: 20130424
  7. CELLCEPT [Suspect]
     Active Substance: MYCOPHENOLATE MOFETIL\MYCOPHENOLATE MOFETIL HYDROCHLORIDE
     Indication: IMMUNOSUPPRESSION
     Route: 048
     Dates: start: 20121223
  8. CONTROLOC [Concomitant]
     Active Substance: PANTOPRAZOLE SODIUM
     Indication: PROPHYLAXIS
     Dosage: DAILY DOSE
     Route: 048
  9. AMOXICILLIN/CLAVULANATE [Suspect]
     Active Substance: AMOXICILLIN\CLAVULANATE POTASSIUM
     Indication: PRODUCT USED FOR UNKNOWN INDICATION
     Route: 065
  10. PROGRAF [Concomitant]
     Active Substance: TACROLIMUS\TACROLIMUS ANHYDROUS
     Dosage: CONCENTRATION 9,9 MCG/L
     Route: 065
  11. ALDIZEM [Concomitant]
     Indication: HYPERTENSION
     Dosage: DAILY DOSE
     Route: 048
     Dates: start: 2013

REACTIONS (7)
  - Endocarditis [Recovered/Resolved]
  - Hepatic haematoma [Recovered/Resolved]
  - Hepatotoxicity [Recovered/Resolved]
  - Chronic kidney disease [Recovered/Resolved]
  - Hepatotoxicity [Recovered/Resolved]
  - Urinary tract infection [Recovered/Resolved]
  - Small intestine gangrene [Recovered/Resolved]

NARRATIVE: CASE EVENT DATE: 20130410
